FAERS Safety Report 23315250 (Version 1)
Quarter: 2023Q4

REPORT INFORMATION
  Report Type: Spontaneous
  Country: US (occurrence: None)
  Receive Date: 20231218
  Receipt Date: 20231218
  Transmission Date: 20240110
  Serious: Yes (Hospitalization)
  Sender: FDA-Public Use
  Company Number: None

PATIENT
  Sex: Female

DRUGS (3)
  1. SILDENAFIL CITRATE [Suspect]
     Active Substance: SILDENAFIL CITRATE
     Indication: Pulmonary arterial hypertension
     Dosage: FREQUENCY : 3 TIMES A DAY;?
     Route: 048
     Dates: start: 202209
  2. ALBUTEROL [Concomitant]
     Active Substance: ALBUTEROL
  3. TYVASO [Concomitant]
     Active Substance: TREPROSTINIL

REACTIONS (6)
  - Chest pain [None]
  - Swelling [None]
  - Fatigue [None]
  - Malaise [None]
  - Dyspnoea [None]
  - Cough [None]
